FAERS Safety Report 4642514-5 (Version None)
Quarter: 2005Q2

REPORT INFORMATION
  Report Type: 
  Country: None (occurrence: None)
  Receive Date: 20050420
  Receipt Date: 20050420
  Transmission Date: 20051028
  Serious: No
  Sender: FDA-Public Use
  Company Number: None

PATIENT
  Sex: Female
  Weight: 77 kg

DRUGS (2)
  1. CISPLATIN [Suspect]
     Dosage: 100 MG/M2 DAYS 1, 22, AND 43
     Dates: start: 20050207
  2. RADIATION TREATMENT [Suspect]

REACTIONS (9)
  - ATRIAL FIBRILLATION [None]
  - ATRIAL FLUTTER [None]
  - BLOOD POTASSIUM DECREASED [None]
  - BLOOD PRESSURE ORTHOSTATIC ABNORMAL [None]
  - BLOOD SODIUM DECREASED [None]
  - DEHYDRATION [None]
  - FEELING ABNORMAL [None]
  - HEART RATE INCREASED [None]
  - PYREXIA [None]
